FAERS Safety Report 13410442 (Version 2)
Quarter: 2017Q4

REPORT INFORMATION
  Report Type: Spontaneous
  Country: US (occurrence: US)
  Receive Date: 20170406
  Receipt Date: 20171123
  Transmission Date: 20180320
  Serious: No
  Sender: FDA-Public Use
  Company Number: US-JNJFOC-20170226573

PATIENT
  Age: 10 Year
  Sex: Male

DRUGS (10)
  1. RISPERDAL [Suspect]
     Active Substance: RISPERIDONE
     Indication: AGITATION
     Dosage: VARYING DOSES OF 0.5 AND 1 MG
     Route: 048
     Dates: start: 19990129, end: 20021127
  2. RISPERDAL [Suspect]
     Active Substance: RISPERIDONE
     Indication: AGGRESSION
     Route: 048
     Dates: start: 19990128, end: 20021022
  3. RISPERDAL [Suspect]
     Active Substance: RISPERIDONE
     Indication: OPPOSITIONAL DEFIANT DISORDER
     Dosage: VARYING DOSES OF 0.5 AND 1 MG
     Route: 048
     Dates: start: 19990129, end: 20021127
  4. RISPERDAL [Suspect]
     Active Substance: RISPERIDONE
     Indication: POST-TRAUMATIC STRESS DISORDER
     Route: 048
     Dates: start: 19990128, end: 20021022
  5. RISPERDAL [Suspect]
     Active Substance: RISPERIDONE
     Indication: POST-TRAUMATIC STRESS DISORDER
     Dosage: VARYING DOSES OF 0.5 AND 1 MG
     Route: 048
     Dates: start: 19990129, end: 20021127
  6. RISPERDAL [Suspect]
     Active Substance: RISPERIDONE
     Indication: AGITATION
     Route: 048
     Dates: start: 19990128, end: 20021022
  7. RISPERDAL [Suspect]
     Active Substance: RISPERIDONE
     Indication: AGGRESSION
     Dosage: VARYING DOSES OF 0.5 AND 1 MG
     Route: 048
     Dates: start: 19990129, end: 20021127
  8. RISPERDAL [Suspect]
     Active Substance: RISPERIDONE
     Indication: PERSISTENT DEPRESSIVE DISORDER
     Route: 048
     Dates: start: 19990128, end: 20021022
  9. RISPERDAL [Suspect]
     Active Substance: RISPERIDONE
     Indication: PERSISTENT DEPRESSIVE DISORDER
     Dosage: VARYING DOSES OF 0.5 AND 1 MG
     Route: 048
     Dates: start: 19990129, end: 20021127
  10. RISPERDAL [Suspect]
     Active Substance: RISPERIDONE
     Indication: OPPOSITIONAL DEFIANT DISORDER
     Route: 048
     Dates: start: 19990128, end: 20021022

REACTIONS (3)
  - Gynaecomastia [Unknown]
  - Emotional disorder [Unknown]
  - Weight increased [Unknown]

NARRATIVE: CASE EVENT DATE: 200006
